FAERS Safety Report 11713892 (Version 6)
Quarter: 2017Q2

REPORT INFORMATION
  Report Type: Spontaneous
  Country: US (occurrence: US)
  Receive Date: 20151109
  Receipt Date: 20170504
  Transmission Date: 20170829
  Serious: Yes (Hospitalization, Congenital Anomaly, Other)
  Sender: FDA-Public Use
  Company Number: PHEH2015US022966

PATIENT
  Sex: Female

DRUGS (3)
  1. ONDANSETRON [Suspect]
     Active Substance: ONDANSETRON
     Indication: FOETAL EXPOSURE DURING PREGNANCY
     Dosage: UNK
     Route: 064
  2. ZOFRAN [Suspect]
     Active Substance: ONDANSETRON HYDROCHLORIDE
     Indication: FOETAL EXPOSURE DURING PREGNANCY
     Dosage: UNK
     Route: 064
  3. ONDANSETRON [Suspect]
     Active Substance: ONDANSETRON
     Indication: FOETAL EXPOSURE DURING PREGNANCY
     Dosage: UNK
     Route: 064

REACTIONS (12)
  - Anhedonia [Unknown]
  - Cleft palate [Unknown]
  - Pain [Unknown]
  - Anxiety [Unknown]
  - Congenital anomaly [Unknown]
  - Speech disorder [Unknown]
  - Neonatal respiratory distress syndrome [Unknown]
  - Emotional distress [Unknown]
  - Eating disorder [Unknown]
  - Injury [Unknown]
  - Premature baby [Unknown]
  - Foetal exposure during pregnancy [Unknown]
